FAERS Safety Report 21084381 (Version 1)
Quarter: 2022Q3

REPORT INFORMATION
  Report Type: Spontaneous
  Country: US (occurrence: US)
  Receive Date: 20220714
  Receipt Date: 20220714
  Transmission Date: 20221026
  Serious: No
  Sender: FDA-Public Use
  Company Number: US-JAZZ-2022-US-017417

PATIENT
  Sex: Male

DRUGS (6)
  1. EPIDIOLEX [Suspect]
     Active Substance: CANNABIDIOL
     Indication: Epilepsy
     Dosage: 1 MILLILITER, BID
     Route: 048
  2. VITAMIN D3 [Concomitant]
     Active Substance: CHOLECALCIFEROL
  3. BRIVIACT [Concomitant]
     Active Substance: BRIVARACETAM
  4. CLOBAZAM [Concomitant]
     Active Substance: CLOBAZAM
  5. VIMPAT [Concomitant]
     Active Substance: LACOSAMIDE
  6. ZONISAMIDE [Concomitant]
     Active Substance: ZONISAMIDE

REACTIONS (2)
  - Product dose omission issue [Unknown]
  - Off label use [Unknown]
